FAERS Safety Report 23558196 (Version 1)
Quarter: 2024Q1

REPORT INFORMATION
  Report Type: Report from Study
  Country: DE (occurrence: DE)
  Receive Date: 20240223
  Receipt Date: 20240223
  Transmission Date: 20240409
  Serious: Yes (Hospitalization)
  Sender: FDA-Public Use
  Company Number: DE-JNJFOC-20240243730

PATIENT
  Age: 64 Year
  Sex: Male
  Weight: 118 kg

DRUGS (18)
  1. TREMFYA [Suspect]
     Active Substance: GUSELKUMAB
     Indication: Psoriasis
     Route: 058
     Dates: start: 20181115
  2. TREMFYA [Suspect]
     Active Substance: GUSELKUMAB
  3. TREMFYA [Suspect]
     Active Substance: GUSELKUMAB
  4. ASPIRIN [Concomitant]
     Active Substance: ASPIRIN
     Dosage: 0-1-0
  5. NEBIVOLOL [Concomitant]
     Active Substance: NEBIVOLOL
     Dosage: 1/2 -0-0
  6. VALSARTAN [Concomitant]
     Active Substance: VALSARTAN
     Dosage: 1-0-0
  7. AMLODIPINE [Concomitant]
     Active Substance: AMLODIPINE BESYLATE
     Dosage: 1-0-0
  8. DOXAZOSIN [Concomitant]
     Active Substance: DOXAZOSIN MESYLATE
     Dosage: HALF-0-0
  9. ATORVASTATIN [Concomitant]
     Active Substance: ATORVASTATIN
     Dosage: 0-0-1
  10. XIPAMIDE [Concomitant]
     Active Substance: XIPAMIDE
     Dosage: 1-0-0
  11. PANTOPRAZOLE [Concomitant]
     Active Substance: PANTOPRAZOLE
     Dosage: 1-0-0
  12. METFORMIN [Concomitant]
     Active Substance: METFORMIN HYDROCHLORIDE
     Dosage: 1-0-1
  13. EMPAGLIFLOZIN [Concomitant]
     Active Substance: EMPAGLIFLOZIN
     Dosage: 1-0-0
  14. GRANU FINK PROSTA [Concomitant]
     Dosage: 0-0-1
  15. HERBALS [Concomitant]
     Active Substance: HERBALS
     Dosage: 1-0-1
  16. FOSTER [Concomitant]
     Active Substance: BECLOMETHASONE\FORMOTEROL
     Dosage: 200/6 UG P. INH. 2-0-2
  17. TIOTROPIUM BROMIDE [Concomitant]
     Active Substance: TIOTROPIUM BROMIDE
     Dosage: 2.5 UG P. INH. 2-0-0
  18. TIMOLOL [Concomitant]
     Active Substance: TIMOLOL
     Dosage: 0-0-1

REACTIONS (1)
  - Pneumonia [Recovered/Resolved]

NARRATIVE: CASE EVENT DATE: 20230117
